FAERS Safety Report 4932164-5 (Version None)
Quarter: 2006Q1

REPORT INFORMATION
  Report Type: 
  Country: None (occurrence: None)
  Receive Date: 20060303
  Receipt Date: 20060221
  Transmission Date: 20060701
  Serious: Yes (Other)
  Sender: FDA-Public Use
  Company Number: PHBS2006DE02845

PATIENT
  Age: 43 Year
  Sex: Female

DRUGS (2)
  1. MYCOPHENOLIC ACID [Suspect]
     Indication: RENAL TRANSPLANT
     Route: 065
  2. TACROLIMUS [Suspect]
     Indication: RENAL TRANSPLANT

REACTIONS (17)
  - ABDOMINAL DISCOMFORT [None]
  - BACTERIURIA [None]
  - BLOOD CREATININE INCREASED [None]
  - CHILLS [None]
  - DYSURIA [None]
  - ESCHERICHIA URINARY TRACT INFECTION [None]
  - HAEMATURIA [None]
  - HAEMODIALYSIS [None]
  - INFLAMMATION [None]
  - KIDNEY ENLARGEMENT [None]
  - LEUKOCYTURIA [None]
  - MALACOPLAKIA VESICAE [None]
  - NUCLEAR MAGNETIC RESONANCE IMAGING ABNORMAL [None]
  - OLIGURIA [None]
  - PROTEINURIA [None]
  - ULTRASOUND SCAN ABNORMAL [None]
  - WHITE BLOOD CELL COUNT INCREASED [None]
